FAERS Safety Report 15020353 (Version 1)
Quarter: 2018Q2

REPORT INFORMATION
  Report Type: Spontaneous
  Country: CZ (occurrence: CZ)
  Receive Date: 20180618
  Receipt Date: 20180618
  Transmission Date: 20180711
  Serious: Yes (Life-Threatening)
  Sender: FDA-Public Use
  Company Number: CZ-HTU-2018CZ013928

PATIENT
  Sex: Male

DRUGS (3)
  1. PALONOSETRON HYDROCHLORIDE. [Suspect]
     Active Substance: PALONOSETRON HYDROCHLORIDE
     Indication: PROPHYLAXIS OF NAUSEA AND VOMITING
     Dates: start: 20151103, end: 20151103
  2. CALCIUM GLUCONICUM                 /00060701/ [Suspect]
     Active Substance: CALCIUM GLUCONATE
     Indication: PREMEDICATION
     Dates: start: 20151103, end: 20151103
  3. DEXAMETHASONE. [Suspect]
     Active Substance: DEXAMETHASONE
     Indication: PREMEDICATION

REACTIONS (3)
  - Anaphylactic reaction [Unknown]
  - Cardio-respiratory arrest [Recovered/Resolved]
  - Circulatory collapse [Recovered/Resolved]

NARRATIVE: CASE EVENT DATE: 20151103
